FAERS Safety Report 4893230-6 (Version None)
Quarter: 2006Q1

REPORT INFORMATION
  Report Type: 
  Country: None (occurrence: None)
  Receive Date: 20060124
  Receipt Date: 20051214
  Transmission Date: 20060701
  Serious: Yes (Other)
  Sender: FDA-Public Use
  Company Number: 221205

PATIENT
  Age: 26 Year
  Sex: Female

DRUGS (3)
  1. HERCEPTIN [Suspect]
     Indication: BREAST CANCER METASTATIC
     Dosage: SEE IMAGE
  2. VINORELBINE TARTRATE [Concomitant]
  3. INTRAVENOUS FLUIDS (UNK INGREDIENTS) (INTRAVENOUS SOLUTION NOS) [Concomitant]

REACTIONS (3)
  - DRUG EXPOSURE DURING PREGNANCY [None]
  - INDUCED LABOUR [None]
  - OLIGOHYDRAMNIOS [None]
